FAERS Safety Report 16714743 (Version 2)
Quarter: 2019Q3

REPORT INFORMATION
  Report Type: Spontaneous
  Country: FR (occurrence: FR)
  Receive Date: 20190819
  Receipt Date: 20190905
  Transmission Date: 20191004
  Serious: Yes (Other)
  Sender: FDA-Public Use
  Company Number: PHHY2019FR187813

PATIENT
  Age: 18 Year
  Sex: Female

DRUGS (18)
  1. RIFAMPICIN [Suspect]
     Active Substance: RIFAMPIN
     Indication: ANTIBIOTIC THERAPY
  2. AMOXICILLIN. [Suspect]
     Active Substance: AMOXICILLIN
     Indication: ESCHERICHIA INFECTION
  3. VANCOMYCIN [Concomitant]
     Active Substance: VANCOMYCIN
     Indication: ANTIBIOTIC THERAPY
  4. CEFEPIME [Concomitant]
     Active Substance: CEFEPIME HYDROCHLORIDE
     Indication: EVIDENCE BASED TREATMENT
  5. VANCOMYCIN [Concomitant]
     Active Substance: VANCOMYCIN
     Indication: ENTEROCOCCAL INFECTION
     Dosage: 15 MG/KG, UNK (LOADING DOSE)
     Route: 042
  6. GENTAMICIN. [Concomitant]
     Active Substance: GENTAMICIN
     Indication: ENTEROCOCCAL INFECTION
     Dosage: 5 MG/KG, QD
     Route: 042
  7. RIFAMPICIN [Suspect]
     Active Substance: RIFAMPIN
     Indication: ENTEROCOCCAL INFECTION
     Dosage: UNK (PRESCRIBED FOR 6 WEEKS)
     Route: 048
  8. AMOXICILLIN. [Suspect]
     Active Substance: AMOXICILLIN
     Indication: ENTEROCOCCAL INFECTION
     Dosage: UNK, PRESCRIBED FOR 6 WEEKS
     Route: 048
  9. AMOXICILLIN. [Suspect]
     Active Substance: AMOXICILLIN
     Indication: ANTIBIOTIC THERAPY
  10. VANCOMYCIN [Concomitant]
     Active Substance: VANCOMYCIN
     Indication: EVIDENCE BASED TREATMENT
  11. CEFEPIME [Concomitant]
     Active Substance: CEFEPIME HYDROCHLORIDE
     Indication: ESCHERICHIA INFECTION
     Dosage: 100 MG/KG, QD (MAINTANCE DOSE, FOR A TOTAL OF 7 DAYS)
     Route: 042
  12. GENTAMICIN. [Concomitant]
     Active Substance: GENTAMICIN
     Indication: ANTIBIOTIC THERAPY
  13. CEFEPIME [Concomitant]
     Active Substance: CEFEPIME HYDROCHLORIDE
     Indication: ENTEROCOCCAL INFECTION
     Dosage: 2 G, UNK (LOADING DOSE)
     Route: 042
  14. CEFEPIME [Concomitant]
     Active Substance: CEFEPIME HYDROCHLORIDE
     Indication: ANTIBIOTIC THERAPY
  15. RIFAMPICIN [Suspect]
     Active Substance: RIFAMPIN
     Indication: ESCHERICHIA INFECTION
  16. VANCOMYCIN [Concomitant]
     Active Substance: VANCOMYCIN
     Indication: ESCHERICHIA INFECTION
     Dosage: 30 MG/KG, QD (MAINTENANCE DOSE; FOR A TOTAL OF 7 DAYS)
     Route: 042
  17. GENTAMICIN. [Concomitant]
     Active Substance: GENTAMICIN
     Indication: ESCHERICHIA INFECTION
  18. GENTAMICIN. [Concomitant]
     Active Substance: GENTAMICIN
     Indication: EVIDENCE BASED TREATMENT

REACTIONS (3)
  - Product use in unapproved indication [Unknown]
  - Bacillus infection [Unknown]
  - Treatment failure [Unknown]
